FAERS Safety Report 5873755-7 (Version None)
Quarter: 2008Q3

REPORT INFORMATION
  Report Type: 
  Country: None (occurrence: None)
  Receive Date: 20080908
  Receipt Date: 20080828
  Transmission Date: 20090109
  Serious: No
  Sender: FDA-Public Use
  Company Number: BR-ROCHE-556542

PATIENT
  Sex: Female
  Weight: 3.1 kg

DRUGS (2)
  1. ROACUTAN [Suspect]
     Indication: ACNE
     Route: 064
     Dates: start: 19990101, end: 20010101
  2. CONTRACEPTIVE NOS [Concomitant]
     Indication: CONTRACEPTION
     Route: 064

REACTIONS (2)
  - LACRIMATION INCREASED [None]
  - NORMAL NEWBORN [None]
